FAERS Safety Report 4987337-2 (Version None)
Quarter: 2006Q2

REPORT INFORMATION
  Report Type: 
  Country: None (occurrence: None)
  Receive Date: 20060501
  Receipt Date: 20050711
  Transmission Date: 20061013
  Serious: Yes (Death, Hospitalization, Other)
  Sender: FDA-Public Use
  Company Number: US-MERCK-0507USA01383

PATIENT
  Age: 54 Year
  Sex: Male
  Weight: 134 kg

DRUGS (1)
  1. VIOXX [Suspect]
     Route: 048

REACTIONS (6)
  - CARDIAC DISORDER [None]
  - DEATH [None]
  - LEUKAEMIA [None]
  - MENTAL DISORDER [None]
  - MUSCULOSKELETAL DISORDER [None]
  - MYOCARDIAL INFARCTION [None]
